FAERS Safety Report 5611245-7 (Version None)
Quarter: 2008Q1

REPORT INFORMATION
  Report Type: 
  Country: None (occurrence: None)
  Receive Date: 20080201
  Receipt Date: 20080124
  Transmission Date: 20080703
  Serious: Yes (Other)
  Sender: FDA-Public Use
  Company Number: PHEH2008US01200

PATIENT
  Sex: Female

DRUGS (2)
  1. STARLIX [Suspect]
     Dosage: UNK, UNK
  2. METFORMIN HCL [Suspect]
     Dosage: UNK, UNK

REACTIONS (3)
  - FLUID RETENTION [None]
  - RENAL IMPAIRMENT [None]
  - WEIGHT INCREASED [None]
